FAERS Safety Report 9745122 (Version 4)
Quarter: 2014Q1

REPORT INFORMATION
  Report Type: Report from Study
  Country: GB (occurrence: GB)
  Receive Date: 20131211
  Receipt Date: 20140120
  Transmission Date: 20141002
  Serious: Yes (Hospitalization)
  Sender: FDA-Public Use
  Company Number: GB-ROCHE-1310519

PATIENT
  Age: 50 Year
  Sex: Female
  Weight: 60 kg

DRUGS (5)
  1. TRASTUZUMAB EMTANSINE [Suspect]
     Indication: HER-2 POSITIVE BREAST CANCER
     Dosage: DATE OF LAST DOSE PRIOR TO SAE : 03/MAY/2013, 24/MAY/2013.
     Route: 042
     Dates: start: 20130322
  2. DEXAMETHASONE [Concomitant]
     Route: 065
     Dates: start: 20130308
  3. LANSOPRAZOLE [Concomitant]
     Route: 065
     Dates: start: 20130308
  4. DOMPERIDONE [Concomitant]
     Route: 065
     Dates: start: 20130219
  5. DOMPERIDONE [Concomitant]
     Route: 065
     Dates: start: 20130308

REACTIONS (1)
  - Dizziness [Recovered/Resolved]
